FAERS Safety Report 8200645-7 (Version None)
Quarter: 2012Q1

REPORT INFORMATION
  Report Type: 
  Country: None (occurrence: None)
  Receive Date: 20120306
  Receipt Date: 20120301
  Transmission Date: 20120608
  Serious: Yes (Hospitalization)
  Sender: FDA-Public Use
  Company Number: GER/GER/11/0019110

PATIENT
  Age: 64 Year
  Sex: Male
  Weight: 106 kg

DRUGS (4)
  1. RAMIPRIL [Suspect]
     Indication: HYPERTENSION
     Dosage: 5 MG, 2 IN 1 D,ORAL
     Route: 048
     Dates: start: 20080101, end: 20110101
  2. HYDROCHLOROTHIAZIDE [Concomitant]
  3. METFORMIN HCL [Concomitant]
  4. BISOPROLOL FUMARATE [Concomitant]

REACTIONS (5)
  - DYSPNOEA [None]
  - LIP SWELLING [None]
  - SWELLING FACE [None]
  - PRURITUS [None]
  - DRUG HYPERSENSITIVITY [None]
